FAERS Safety Report 12779933 (Version 9)
Quarter: 2017Q4

REPORT INFORMATION
  Report Type: Spontaneous
  Country: US (occurrence: US)
  Receive Date: 20160926
  Receipt Date: 20171026
  Transmission Date: 20180320
  Serious: Yes (Hospitalization, Other)
  Sender: FDA-Public Use
  Company Number: US-PFIZER INC-2016447939

PATIENT
  Age: 72 Year
  Sex: Female

DRUGS (9)
  1. SALSALATE. [Suspect]
     Active Substance: SALSALATE
     Indication: SWELLING
     Dosage: 1500 MG, 2X/DAY
     Dates: start: 200808
  2. CARDIZEM [Concomitant]
     Active Substance: DILTIAZEM HYDROCHLORIDE
     Indication: CARDIAC DISORDER
     Dosage: 30 MG, 2X/DAY (TAKES IT IN AM AND PM)
  3. CARDIZEM [Concomitant]
     Active Substance: DILTIAZEM HYDROCHLORIDE
     Dosage: 100 MG, 2X/DAY (200 MG 1/2 TWICE A DAY)
     Dates: start: 201606
  4. PRISTIQ EXTENDED-RELEASE [Concomitant]
     Active Substance: DESVENLAFAXINE SUCCINATE
     Indication: BIPOLAR DISORDER
     Dosage: 50 MG, 2X/DAY
     Dates: start: 2014
  5. BUSPIRONE [Concomitant]
     Active Substance: BUSPIRONE HYDROCHLORIDE
     Indication: BIPOLAR DISORDER
     Dosage: 2X/DAY (DOSE: 15 AT BREAKFAST AND 15 AT DINNER (UNIT NOT PROVIDED).)
  6. FLECAINIDE [Concomitant]
     Active Substance: FLECAINIDE
     Indication: CARDIAC DISORDER
     Dosage: 50 MG, 2X/DAY
  7. XELJANZ XR [Suspect]
     Active Substance: TOFACITINIB CITRATE
     Indication: RHEUMATOID ARTHRITIS
     Dosage: 11 MG, 1X/DAY (MORNING)
     Route: 048
     Dates: start: 20160727
  8. CARBAMAZEPINE. [Concomitant]
     Active Substance: CARBAMAZEPINE
     Indication: BIPOLAR DISORDER
     Dosage: 400 MG, DAILY (100 MG IN MORNING AND AT BED TIME 300 MG)
  9. PRISTIQ EXTENDED-RELEASE [Concomitant]
     Active Substance: DESVENLAFAXINE SUCCINATE
     Dosage: 50 MG, 1X/DAY (BED TIME)
     Dates: start: 2014

REACTIONS (12)
  - Weight increased [Unknown]
  - Dysphonia [Unknown]
  - Pain [Unknown]
  - Constipation [Unknown]
  - Heart rate abnormal [Recovered/Resolved]
  - Aspergillus infection [Not Recovered/Not Resolved]
  - Gait disturbance [Unknown]
  - Rotator cuff syndrome [Unknown]
  - Dizziness [Recovered/Resolved]
  - Fall [Unknown]
  - Nasopharyngitis [Unknown]
  - Trigger finger [Unknown]

NARRATIVE: CASE EVENT DATE: 2016
